FAERS Safety Report 16159399 (Version 1)
Quarter: 2019Q2

REPORT INFORMATION
  Report Type: Spontaneous
  Country: US (occurrence: US)
  Receive Date: 20190301
  Receipt Date: 20190301
  Transmission Date: 20190711
  Serious: No
  Sender: FDA-Public Use
  Company Number: None

PATIENT
  Age: 8 Year
  Sex: Female

DRUGS (1)
  1. RYDAPT [Suspect]
     Active Substance: MIDOSTAURIN
     Indication: ACUTE MYELOID LEUKAEMIA
     Dates: start: 20190204

REACTIONS (4)
  - Vomiting [None]
  - Tachycardia [None]
  - Chest pain [None]
  - Nausea [None]

NARRATIVE: CASE EVENT DATE: 20190301
